FAERS Safety Report 13949655 (Version 1)
Quarter: 2017Q3

REPORT INFORMATION
  Report Type: Spontaneous
  Country: BR (occurrence: BR)
  Receive Date: 20170908
  Receipt Date: 20170908
  Transmission Date: 20171128
  Serious: Yes (Other)
  Sender: FDA-Public Use
  Company Number: BR-JNJFOC-20170828772

PATIENT

DRUGS (1)
  1. DARZALEX [Suspect]
     Active Substance: DARATUMUMAB
     Indication: NEOPLASM MALIGNANT
     Route: 042

REACTIONS (7)
  - Blindness [Unknown]
  - Anosmia [Unknown]
  - Cell marker increased [Unknown]
  - Decreased immune responsiveness [Unknown]
  - Bone marrow transplant [Unknown]
  - Asthenia [Unknown]
  - Ageusia [Unknown]
